FAERS Safety Report 4502249-6 (Version None)
Quarter: 2004Q4

REPORT INFORMATION
  Report Type: 
  Country: None (occurrence: None)
  Receive Date: 20041109
  Receipt Date: 20041027
  Transmission Date: 20050328
  Serious: Yes (Life-Threatening)
  Sender: FDA-Public Use
  Company Number: GBS041015834

PATIENT
  Age: 64 Year
  Sex: Female

DRUGS (1)
  1. OLANZAPINE [Suspect]
     Dosage: 20 MG
     Route: 048
     Dates: start: 20040701, end: 20041001

REACTIONS (26)
  - ARTHRALGIA [None]
  - BODY FAT DISORDER [None]
  - CARDIAC DISORDER [None]
  - CARDIOVASCULAR DISORDER [None]
  - CLUBBING [None]
  - CONSTIPATION [None]
  - CUSHINGOID [None]
  - DRY MOUTH [None]
  - GAIT DISTURBANCE [None]
  - HEAD INJURY [None]
  - HEADACHE [None]
  - INSOMNIA [None]
  - MENTAL IMPAIRMENT [None]
  - MICTURITION URGENCY [None]
  - PAIN IN EXTREMITY [None]
  - PALPITATIONS [None]
  - POLLAKIURIA [None]
  - PSYCHIATRIC SYMPTOM [None]
  - RESPIRATION ABNORMAL [None]
  - SCHIZOPHRENIA [None]
  - SOMNOLENCE [None]
  - TOOTH DISORDER [None]
  - URINARY INCONTINENCE [None]
  - VEIN DISORDER [None]
  - VISUAL DISTURBANCE [None]
  - WEIGHT INCREASED [None]
